FAERS Safety Report 18321288 (Version 1)
Quarter: 2020Q3

REPORT INFORMATION
  Report Type: Spontaneous
  Country: DE (occurrence: DE)
  Receive Date: 20200928
  Receipt Date: 20200928
  Transmission Date: 20201103
  Serious: Yes (Life-Threatening, Hospitalization)
  Sender: FDA-Public Use
  Company Number: DE-TEVA-2020-DE-1831264

PATIENT
  Age: 89 Year
  Sex: Female

DRUGS (8)
  1. ASS 100 [Concomitant]
     Active Substance: ASPIRIN
     Dosage: 100 MILLIGRAM DAILY; 1?0?0?0
  2. INSULIN GLARGIN [Concomitant]
     Active Substance: INSULIN GLARGINE
     Dosage: ACCORDING TO PLAN, SOLUTION FOR INJECTION / INFUSION
     Route: 058
  3. LERCANIDIPIN [Concomitant]
     Active Substance: LERCANIDIPINE
     Dosage: 10 MG, 0.5?0?1?0
  4. SIMVASTATIN. [Concomitant]
     Active Substance: SIMVASTATIN
     Dosage: 10 MILLIGRAM DAILY;  0?0?1?0
  5. INSULIN LISPRO [Concomitant]
     Active Substance: INSULIN LISPRO
     Dosage: ACCORDING TO PLAN,SOLUTION FOR INJECTION / INFUSION
     Route: 058
  6. RAMIPRIL. [Concomitant]
     Active Substance: RAMIPRIL
     Dosage: 10 MILLIGRAM DAILY; 1?0?1?0
  7. HYDROCHLOROTHIAZID [Suspect]
     Active Substance: HYDROCHLOROTHIAZIDE
     Dosage: 12.5 MILLIGRAM DAILY;  0?1?0?0
  8. AMLODIPIN [Concomitant]
     Active Substance: AMLODIPINE BESYLATE
     Dosage: 10 MILLIGRAM DAILY;  1?0?1?0

REACTIONS (7)
  - Confusional state [Unknown]
  - Hypovolaemia [Unknown]
  - Diarrhoea [Unknown]
  - Fall [Unknown]
  - Asthenia [Unknown]
  - Electrolyte imbalance [Unknown]
  - Hyponatraemia [Unknown]
